FAERS Safety Report 21343247 (Version 1)
Quarter: 2022Q3

REPORT INFORMATION
  Report Type: Spontaneous
  Country: US (occurrence: None)
  Receive Date: 20220916
  Receipt Date: 20220916
  Transmission Date: 20221027
  Serious: Yes (Hospitalization)
  Sender: FDA-Public Use
  Company Number: None

PATIENT
  Age: 71 Year
  Sex: Male
  Weight: 107 kg

DRUGS (1)
  1. TRAMADOL HYDROCHLORIDE [Suspect]
     Active Substance: TRAMADOL HYDROCHLORIDE
     Indication: Pain
     Dosage: 50 MG BID PO?
     Route: 048
     Dates: start: 20220526, end: 20220607

REACTIONS (12)
  - Temperature intolerance [None]
  - Temperature intolerance [None]
  - Therapy cessation [None]
  - Nausea [None]
  - Sedation [None]
  - Confusional state [None]
  - Glassy eyes [None]
  - Loss of control of legs [None]
  - Musculoskeletal disorder [None]
  - Fall [None]
  - Somnolence [None]
  - Mental status changes [None]

NARRATIVE: CASE EVENT DATE: 20220609
